FAERS Safety Report 16420138 (Version 1)
Quarter: 2019Q2

REPORT INFORMATION
  Report Type: Spontaneous
  Country: US (occurrence: US)
  Receive Date: 20190612
  Receipt Date: 20190612
  Transmission Date: 20190711
  Serious: No
  Sender: FDA-Public Use
  Company Number: US-ENDO PHARMACEUTICALS INC-2018-043261

PATIENT
  Age: 10 Year
  Sex: Female

DRUGS (2)
  1. SUPPRELIN LA [Suspect]
     Active Substance: HISTRELIN ACETATE
     Indication: PRECOCIOUS PUBERTY
     Dosage: UNK, UNKNOWN, UNKNOWN
     Route: 058
     Dates: start: 201707
  2. SUPPRELIN LA [Suspect]
     Active Substance: HISTRELIN ACETATE
     Dosage: 50MG, ONCE A YEAR
     Route: 058
     Dates: start: 201808

REACTIONS (3)
  - Incorrect product administration duration [Not Recovered/Not Resolved]
  - Procedural complication [Not Recovered/Not Resolved]
  - Device dislocation [Not Recovered/Not Resolved]

NARRATIVE: CASE EVENT DATE: 201808
